FAERS Safety Report 4843954-1 (Version None)
Quarter: 2005Q4

REPORT INFORMATION
  Report Type: 
  Country: None (occurrence: None)
  Receive Date: 20051130
  Receipt Date: 20051130
  Transmission Date: 20060501
  Serious: Yes (Hospitalization)
  Sender: FDA-Public Use
  Company Number: None

PATIENT
  Sex: Male

DRUGS (17)
  1. WARFARIN    2 MG [Suspect]
     Indication: PULMONARY EMBOLISM
     Dosage: TITRATING
     Dates: start: 20050803, end: 20050809
  2. UNASYN [Concomitant]
  3. COMBIVENT [Concomitant]
  4. ATENOLOL [Concomitant]
  5. FLUVASTATIN [Concomitant]
  6. OXYCONTIN [Concomitant]
  7. OXYCODONE [Concomitant]
  8. FIORICET [Concomitant]
  9. GABAPENTIN [Concomitant]
  10. AMITRIPTYLINE HCL [Concomitant]
  11. SERTRALINE HCL [Concomitant]
  12. BACLOFEN [Concomitant]
  13. SENNA [Concomitant]
  14. FAMOTIDINE [Concomitant]
  15. OXYBUTYNIN [Concomitant]
  16. NICOTINE [Concomitant]
  17. TEMAZEPAM [Concomitant]

REACTIONS (2)
  - EPISTAXIS [None]
  - HYPOTENSION [None]
